FAERS Safety Report 6618586-5 (Version None)
Quarter: 2010Q1

REPORT INFORMATION
  Report Type: 
  Country: None (occurrence: None)
  Receive Date: 20100223
  Receipt Date: 20091201
  Transmission Date: 20100710
  Serious: No
  Sender: FDA-Public Use
  Company Number: 004261

PATIENT
  Sex: Male

DRUGS (3)
  1. CIMZIA [Suspect]
     Dosage: (SUBCUTANEOUS)
     Route: 058
     Dates: start: 20090403
  2. CIMZIA [Suspect]
  3. METHOTREXATE [Suspect]
     Dates: start: 20091101

REACTIONS (1)
  - POOR QUALITY SLEEP [None]
